FAERS Safety Report 23149974 (Version 1)
Quarter: 2023Q4

REPORT INFORMATION
  Report Type: Spontaneous
  Country: CN (occurrence: CN)
  Receive Date: 20231106
  Receipt Date: 20231106
  Transmission Date: 20240109
  Serious: Yes (Hospitalization)
  Sender: FDA-Public Use
  Company Number: CN-002147023-NVSC2023CN231230

PATIENT
  Age: 23 Year
  Sex: Female

DRUGS (1)
  1. DEXAMETHASONE\TOBRAMYCIN [Suspect]
     Active Substance: DEXAMETHASONE\TOBRAMYCIN
     Indication: Symptomatic treatment
     Dosage: 0.1 G, TID
     Route: 065
     Dates: start: 20231011, end: 20231012

REACTIONS (1)
  - Pigmentation disorder [Recovered/Resolved]

NARRATIVE: CASE EVENT DATE: 20231012
